FAERS Safety Report 22341974 (Version 1)
Quarter: 2023Q2

REPORT INFORMATION
  Report Type: Spontaneous
  Country: AU (occurrence: AU)
  Receive Date: 20230518
  Receipt Date: 20230518
  Transmission Date: 20230722
  Serious: Yes (Other)
  Sender: FDA-Public Use
  Company Number: AU-ALXN-A202306297

PATIENT
  Age: 51 Year
  Sex: Male

DRUGS (1)
  1. SOLIRIS [Suspect]
     Active Substance: ECULIZUMAB
     Indication: Paroxysmal nocturnal haemoglobinuria
     Dosage: 900 MG, Q2W
     Route: 065

REACTIONS (4)
  - Breakthrough haemolysis [Unknown]
  - Liver function test increased [Unknown]
  - Malaise [Recovered/Resolved]
  - Haemoglobin decreased [Recovered/Resolved]
